FAERS Safety Report 19495387 (Version 1)
Quarter: 2021Q3

REPORT INFORMATION
  Report Type: Spontaneous
  Country: US (occurrence: US)
  Receive Date: 20210706
  Receipt Date: 20210706
  Transmission Date: 20211014
  Serious: No
  Sender: FDA-Public Use
  Company Number: US-HIKMA PHARMACEUTICALS USA INC.-US-H14001-21-01445

PATIENT
  Sex: Male

DRUGS (1)
  1. CIPROFLOXACIN. [Suspect]
     Active Substance: CIPROFLOXACIN
     Indication: URINARY TRACT INFECTION
     Dosage: REPORTEDLY AT DOSE OF 5 MG
     Route: 048

REACTIONS (3)
  - Muscle swelling [Recovered/Resolved]
  - Blue toe syndrome [Recovered/Resolved]
  - Joint swelling [Recovered/Resolved]
